FAERS Safety Report 6078030-6 (Version None)
Quarter: 2009Q1

REPORT INFORMATION
  Report Type: 
  Country: None (occurrence: None)
  Receive Date: 20090213
  Receipt Date: 20090205
  Transmission Date: 20090719
  Serious: Yes (Other)
  Sender: FDA-Public Use
  Company Number: US-PFIZER INC-2007079295

PATIENT
  Sex: Female
  Weight: 90.703 kg

DRUGS (10)
  1. LIPITOR [Suspect]
     Indication: BLOOD CHOLESTEROL INCREASED
     Dosage: 20 MG, 1X/DAY
     Dates: start: 19970101, end: 20090202
  2. CHANTIX [Suspect]
     Indication: SMOKING CESSATION THERAPY
     Dosage: 0.5 MG, 1X/DAY
     Dates: start: 20090106
  3. LISINOPRIL [Concomitant]
     Indication: CARDIOVASCULAR DISORDER
     Dosage: 5 MG, UNK
  4. ACETYLSALICYLIC ACID [Concomitant]
     Dosage: UNK
  5. PLAVIX [Concomitant]
     Dosage: UNK
  6. SPIRIVA [Concomitant]
     Dosage: UNK
  7. COREG [Concomitant]
     Dosage: UNK
  8. DARVOCET [Concomitant]
     Dosage: UNK MG, UNK
  9. ENSURE [Concomitant]
     Dosage: UNK
  10. XANAX [Concomitant]
     Dosage: UNK

REACTIONS (14)
  - ASTHENIA [None]
  - BLOOD GLUCOSE INCREASED [None]
  - BOWEL MOVEMENT IRREGULARITY [None]
  - BURNING SENSATION [None]
  - DIZZINESS [None]
  - FLATULENCE [None]
  - GASTROOESOPHAGEAL REFLUX DISEASE [None]
  - HYPERSENSITIVITY [None]
  - MYALGIA [None]
  - PRURITUS [None]
  - RENAL DISORDER [None]
  - URINARY RETENTION [None]
  - VISION BLURRED [None]
  - VOMITING [None]
